FAERS Safety Report 5320200-6 (Version None)
Quarter: 2007Q2

REPORT INFORMATION
  Report Type: 
  Country: None (occurrence: None)
  Receive Date: 20070509
  Receipt Date: 20070501
  Transmission Date: 20071010
  Serious: Yes (Other)
  Sender: FDA-Public Use
  Company Number: A0649485A

PATIENT
  Age: 73 Year
  Sex: Female

DRUGS (13)
  1. ADVAIR DISKUS 100/50 [Suspect]
     Indication: CHRONIC OBSTRUCTIVE PULMONARY DISEASE
     Route: 055
     Dates: start: 20070423, end: 20070425
  2. SPIRIVA [Suspect]
  3. COREG [Concomitant]
     Indication: DRUG USE FOR UNKNOWN INDICATION
     Route: 065
  4. NITRO-DUR [Concomitant]
  5. NASONEX [Concomitant]
  6. ZYRTEC [Concomitant]
  7. ZETIA [Concomitant]
  8. CRESTOR [Concomitant]
  9. COREG [Concomitant]
  10. BENICAR [Concomitant]
  11. PROMETHAZINE [Concomitant]
  12. TYLENOL W/ CODEINE [Concomitant]
  13. VALIUM [Concomitant]

REACTIONS (8)
  - ANOREXIA [None]
  - CHEST PAIN [None]
  - DYSPNOEA [None]
  - HEADACHE [None]
  - HEART RATE INCREASED [None]
  - HEART RATE IRREGULAR [None]
  - HYPERTENSION [None]
  - SYNCOPE [None]
